FAERS Safety Report 7403985-4 (Version None)
Quarter: 2011Q2

REPORT INFORMATION
  Report Type: 
  Country: None (occurrence: None)
  Receive Date: 20110408
  Receipt Date: 20101109
  Transmission Date: 20111010
  Serious: Yes (Hospitalization, Other)
  Sender: FDA-Public Use
  Company Number: US-BAYER-201027519NA

PATIENT
  Age: 46 Year
  Sex: Female
  Weight: 77.551 kg

DRUGS (2)
  1. YAZ [Suspect]
     Indication: CONTRACEPTION
     Dosage: UNK UNK, UNK
     Route: 048
     Dates: start: 20070401, end: 20080501
  2. YASMIN [Suspect]
     Indication: CONTRACEPTION
     Dosage: UNK UNK, UNK
     Route: 048
     Dates: start: 20050501, end: 20070401

REACTIONS (11)
  - ELECTROCARDIOGRAM T WAVE PEAKED [None]
  - GASTROOESOPHAGEAL REFLUX DISEASE [None]
  - CHEST PAIN [None]
  - DILATATION ATRIAL [None]
  - HYPERTENSION [None]
  - ATRIAL TACHYCARDIA [None]
  - SLEEP APNOEA SYNDROME [None]
  - ELECTROCARDIOGRAM P WAVE ABNORMAL [None]
  - SUPRAVENTRICULAR TACHYCARDIA [None]
  - NAUSEA [None]
  - ELECTROCARDIOGRAM ST SEGMENT ABNORMAL [None]
